FAERS Safety Report 4367105-5 (Version None)
Quarter: 2004Q2

REPORT INFORMATION
  Report Type: 
  Country: None (occurrence: None)
  Receive Date: 20040528
  Receipt Date: 20030620
  Transmission Date: 20050107
  Serious: Yes (Other)
  Sender: FDA-Public Use
  Company Number: US-GLAXOSMITHKLINE-A0413380A

PATIENT
  Sex: Female

DRUGS (1)
  1. SEREVENT [Suspect]
     Indication: ILL-DEFINED DISORDER
     Route: 055

REACTIONS (1)
  - LUNG NEOPLASM MALIGNANT [None]
